FAERS Safety Report 5278468-0 (Version None)
Quarter: 2007Q1

REPORT INFORMATION
  Report Type: 
  Country: None (occurrence: None)
  Receive Date: 20061213
  Receipt Date: 20050615
  Transmission Date: 20070707
  Serious: Yes (Hospitalization)
  Sender: FDA-Public Use
  Company Number: 2005UW09151

PATIENT
  Age: 59 Year
  Sex: Female
  Weight: 44.452 kg

DRUGS (3)
  1. SEROQUEL [Suspect]
     Indication: BIPOLAR I DISORDER
     Dosage: 800 MG PO
     Route: 048
  2. TRAZODONE HCL [Concomitant]
  3. KLONOPIN [Concomitant]

REACTIONS (1)
  - PALPITATIONS [None]
